FAERS Safety Report 16703234 (Version 1)
Quarter: 2019Q3

REPORT INFORMATION
  Report Type: Spontaneous
  Country: US (occurrence: US)
  Receive Date: 20190814
  Receipt Date: 20190814
  Transmission Date: 20191004
  Serious: Yes (Other)
  Sender: FDA-Public Use
  Company Number: US-TOLMAR, INC.-TOLG20192345

PATIENT

DRUGS (2)
  1. FLUTICASONE PROPIONATE. [Suspect]
     Active Substance: FLUTICASONE PROPIONATE
     Indication: EOSINOPHILIC OESOPHAGITIS
     Dosage: 880 MCG - 4 PUFFS
     Route: 049
  2. SUCRALOSE [Concomitant]
     Active Substance: SUCRALOSE
     Indication: THERAPEUTIC PROCEDURE
     Dosage: 4 ML
     Route: 048

REACTIONS (1)
  - Oesophageal food impaction [Unknown]
